FAERS Safety Report 19845915 (Version 2)
Quarter: 2022Q1

REPORT INFORMATION
  Report Type: Spontaneous
  Country: US (occurrence: US)
  Receive Date: 20210916
  Receipt Date: 20220303
  Transmission Date: 20220423
  Serious: Yes (Other)
  Sender: FDA-Public Use
  Company Number: US-BLUEPRINT MEDICINES CORPORATION-SP-US-2021-001580

PATIENT
  Age: 66 Year
  Sex: Male

DRUGS (3)
  1. AYVAKIT [Suspect]
     Active Substance: AVAPRITINIB
     Indication: Systemic mastocytosis
     Route: 048
     Dates: start: 20160901
  2. AYVAKIT [Suspect]
     Active Substance: AVAPRITINIB
     Dosage: TAKE 200MG BY MOUTH ON MON, WED, AND FRI, TAKE 100MG BY MOUTH ON TUE, THURS, SAT, AND SUN
     Route: 048
     Dates: start: 20160901
  3. AYVAKIT [Suspect]
     Active Substance: AVAPRITINIB
     Dosage: TAKE 200MG BY MOUTH ON MON, WED, AND FRI, TAKE 100MG BY MOUTH ON TUE, THURS, SAT, AND SUN
     Route: 048
     Dates: start: 20160901

REACTIONS (20)
  - Diabetes mellitus [Not Recovered/Not Resolved]
  - Loss of consciousness [Unknown]
  - Drug ineffective [Unknown]
  - Muscular weakness [Not Recovered/Not Resolved]
  - Limb discomfort [Not Recovered/Not Resolved]
  - Balance disorder [Unknown]
  - Fall [Unknown]
  - Skin disorder [Unknown]
  - Blood glucose decreased [Unknown]
  - Claustrophobia [Unknown]
  - Depressed mood [Unknown]
  - Memory impairment [Not Recovered/Not Resolved]
  - Rash [Unknown]
  - Pruritus [Unknown]
  - Disorientation [Unknown]
  - Insomnia [Unknown]
  - Pain in extremity [Unknown]
  - Condition aggravated [Unknown]
  - Temperature intolerance [Unknown]
  - Off label use [Unknown]

NARRATIVE: CASE EVENT DATE: 20180909
